FAERS Safety Report 20608616 (Version 2)
Quarter: 2022Q2

REPORT INFORMATION
  Report Type: Spontaneous
  Country: US (occurrence: None)
  Receive Date: 20220317
  Receipt Date: 20220520
  Transmission Date: 20220721
  Serious: Yes (Death, Hospitalization, Disabling)
  Sender: FDA-Public Use
  Company Number: US-ROCHE-3049839

PATIENT
  Age: 63 Year
  Sex: Female

DRUGS (1)
  1. RITUXAN [Suspect]
     Active Substance: RITUXIMAB
     Indication: Systemic lupus erythematosus
     Route: 065

REACTIONS (4)
  - Cardiac arrest [Fatal]
  - Immunosuppression [Fatal]
  - Septic shock [Fatal]
  - Off label use [Fatal]

NARRATIVE: CASE EVENT DATE: 20220209
